FAERS Safety Report 6482284 (Version 3)
Quarter: 2018Q4

REPORT INFORMATION
  Report Type: Spontaneous
  Country: DE (occurrence: DE)
  Receive Date: 20071206
  Receipt Date: 20181002
  Transmission Date: 20190205
  Serious: Yes (Life-Threatening, Hospitalization)
  Sender: FDA-Public Use
  Company Number: DE-PFIZER INC-2007099987

PATIENT
  Age: 60 Year
  Sex: Male
  Weight: 73 kg

DRUGS (1)
  1. SUTENT [Suspect]
     Active Substance: SUNITINIB MALATE
     Indication: METASTATIC RENAL CELL CARCINOMA
     Dosage: 50 MG, 1X/DAY
     Route: 048
     Dates: start: 200709, end: 20071027

REACTIONS (3)
  - Cardiotoxicity [Recovered/Resolved with Sequelae]
  - Acute kidney injury [Recovered/Resolved with Sequelae]
  - Pulmonary oedema [Recovered/Resolved with Sequelae]

NARRATIVE: CASE EVENT DATE: 2007
